FAERS Safety Report 6478387-8 (Version None)
Quarter: 2009Q4

REPORT INFORMATION
  Report Type: 
  Country: None (occurrence: None)
  Receive Date: 20091207
  Receipt Date: 20091125
  Transmission Date: 20100525
  Serious: Yes (Hospitalization)
  Sender: FDA-Public Use
  Company Number: PHEH2009US16877

PATIENT
  Sex: Female
  Weight: 57.143 kg

DRUGS (17)
  1. RECLAST [Suspect]
     Indication: OSTEOPOROSIS POSTMENOPAUSAL
     Dosage: 5MG, YEARLY
     Route: 042
     Dates: start: 20090319
  2. FORTEO [Concomitant]
  3. THEOPHYLLINE [Concomitant]
  4. SYNTHROID [Concomitant]
  5. LIPITOR [Concomitant]
  6. TICLID [Concomitant]
  7. PHENYTOIN [Concomitant]
  8. PREVACID [Concomitant]
  9. SINGULAIR [Concomitant]
  10. AMBIEN [Concomitant]
  11. ULTRACET [Concomitant]
  12. ALBUTEROL [Concomitant]
  13. METFORMIN HCL [Concomitant]
  14. CYMBALTA [Concomitant]
  15. UNIPHYL [Concomitant]
  16. CLARINEX                                /USA/ [Concomitant]
  17. PROAIR HFA [Concomitant]

REACTIONS (3)
  - BRONCHIAL HYPERREACTIVITY [None]
  - DRY THROAT [None]
  - DYSTONIA [None]
